FAERS Safety Report 7608715-9 (Version None)
Quarter: 2011Q3

REPORT INFORMATION
  Report Type: 
  Country: None (occurrence: None)
  Receive Date: 20110714
  Receipt Date: 20110711
  Transmission Date: 20111222
  Serious: Yes (Hospitalization)
  Sender: FDA-Public Use
  Company Number: JP-B.I. PHARMACEUTICALS,INC./RIDGEFIELD-2011-BP-15212NB

PATIENT
  Sex: Female
  Weight: 46.8 kg

DRUGS (10)
  1. SYMMETREL [Concomitant]
     Indication: PARKINSONISM
     Dosage: 200 MG
     Route: 048
  2. ALOSENN [Concomitant]
     Indication: CONSTIPATION
     Dosage: 2 G
     Route: 048
  3. CANDESARTAN CILEXETIL [Concomitant]
     Indication: CARDIAC FAILURE CHRONIC
     Dosage: 8 MG
     Route: 048
     Dates: start: 20110527
  4. DEPAS [Concomitant]
     Indication: INSOMNIA
     Dosage: 0.5 MG
     Route: 048
  5. MENEST [Concomitant]
     Indication: PARKINSONISM
     Dosage: 200 MG
     Route: 048
     Dates: end: 20110602
  6. LASIX [Concomitant]
     Indication: CARDIAC FAILURE CHRONIC
     Dosage: 20 MG
     Route: 048
  7. PRADAXA [Suspect]
     Indication: THROMBOSIS PROPHYLAXIS
     Dosage: 300 MG
     Route: 048
     Dates: start: 20110518, end: 20110601
  8. MAGNESIUM SULFATE [Concomitant]
     Indication: CONSTIPATION
     Dosage: 500 MG
     Route: 048
  9. DIGOXIN [Concomitant]
     Indication: HEART RATE INCREASED
     Dosage: 0.125 MG
     Route: 048
     Dates: end: 20110603
  10. LANSOPRAZOLE-OD [Concomitant]
     Indication: PROPHYLAXIS AGAINST GASTROINTESTINAL ULCER
     Dosage: 15 MG
     Route: 048
     Dates: start: 20110518

REACTIONS (4)
  - DECREASED APPETITE [None]
  - NAUSEA [None]
  - INTERNATIONAL NORMALISED RATIO INCREASED [None]
  - VOMITING [None]
